FAERS Safety Report 9608167 (Version 2)
Quarter: 2013Q4

REPORT INFORMATION
  Report Type: Spontaneous
  Country: US (occurrence: US)
  Receive Date: 20131009
  Receipt Date: 20131009
  Transmission Date: 20140711
  Serious: No
  Sender: FDA-Public Use
  Company Number: US-PURDUE-USA-2012-0091091

PATIENT
  Age: 51 Year
  Sex: Female

DRUGS (5)
  1. BUTRANS [Suspect]
     Indication: NEURALGIA
     Dosage: 10 MCG, UNK
     Route: 062
     Dates: start: 20120714, end: 20121003
  2. ZANAFLEX [Concomitant]
     Indication: PRODUCT USED FOR UNKNOWN INDICATION
     Dosage: UNK
  3. PERCOCET                           /00446701/ [Concomitant]
     Indication: PRODUCT USED FOR UNKNOWN INDICATION
     Dosage: 5/325MG UNK
  4. ALLEGRA [Concomitant]
     Indication: PRODUCT USED FOR UNKNOWN INDICATION
     Dosage: UNK
  5. TOPAMAX [Concomitant]
     Indication: PRODUCT USED FOR UNKNOWN INDICATION
     Dosage: UNK

REACTIONS (10)
  - Application site haemorrhage [Recovered/Resolved]
  - Application site burn [Unknown]
  - Incorrect drug administration duration [Unknown]
  - Poor quality sleep [Unknown]
  - Application site rash [Recovered/Resolved]
  - Diarrhoea [Recovering/Resolving]
  - Application site erythema [Recovered/Resolved]
  - Application site pruritus [Recovered/Resolved]
  - Application site vesicles [Unknown]
  - Hypersensitivity [Unknown]
